FAERS Safety Report 4906830-1 (Version None)
Quarter: 2006Q1

REPORT INFORMATION
  Report Type: 
  Country: None (occurrence: None)
  Receive Date: 20060207
  Receipt Date: 20060119
  Transmission Date: 20060701
  Serious: Yes (Hospitalization)
  Sender: FDA-Public Use
  Company Number: 221758

PATIENT
  Age: 70 Year
  Sex: Male
  Weight: 84 kg

DRUGS (2)
  1. AVASTIN (BEVACIZUMAB) PWDR + SOLVENT, INFUSION SOLN, 100MG [Suspect]
     Dosage: 800 MG, 2/MONTH, INTRAVENOUS
     Route: 042
     Dates: start: 20051024, end: 20051108
  2. INTRON A (INTERFERON ALFA-2B) [Suspect]
     Dosage: 6 MIU, 3/WEEK, SUBCUTANEOUS
     Route: 058
     Dates: start: 20050315, end: 20050915

REACTIONS (10)
  - BLOOD CREATININE INCREASED [None]
  - BLOOD LACTATE DEHYDROGENASE INCREASED [None]
  - GLOMERULAR FILTRATION RATE DECREASED [None]
  - GLOMERULAR VASCULAR DISORDER [None]
  - HAPTOGLOBIN DECREASED [None]
  - HYPERTENSION [None]
  - HYPOALBUMINAEMIA [None]
  - PROTEINURIA [None]
  - THROMBOCYTOPENIA [None]
  - THROMBOTIC MICROANGIOPATHY [None]
